FAERS Safety Report 4933642-5 (Version None)
Quarter: 2006Q1

REPORT INFORMATION
  Report Type: 
  Country: None (occurrence: None)
  Receive Date: 20060306
  Receipt Date: 20060227
  Transmission Date: 20060701
  Serious: Yes (Hospitalization)
  Sender: FDA-Public Use
  Company Number: US-BRISTOL-MYERS SQUIBB COMPANY-13297387

PATIENT
  Age: 67 Year
  Sex: Male
  Weight: 85 kg

DRUGS (5)
  1. CARBIDOPA + LEVODOPA [Suspect]
     Indication: PARKINSON'S DISEASE
     Route: 048
     Dates: start: 20050819
  2. AVANDIA [Concomitant]
  3. ZOCOR [Concomitant]
     Dates: start: 20060201
  4. METOPROLOL [Concomitant]
     Route: 048
     Dates: start: 20060201
  5. LISINOPRIL [Concomitant]
     Dates: end: 20060208

REACTIONS (5)
  - BLOOD GLUCOSE INCREASED [None]
  - CATHETERISATION CARDIAC [None]
  - PAIN IN EXTREMITY [None]
  - PAIN IN JAW [None]
  - QUADRUPLE VESSEL BYPASS GRAFT [None]
